FAERS Safety Report 18100693 (Version 1)
Quarter: 2020Q3

REPORT INFORMATION
  Report Type: Other
  Country: US (occurrence: US)
  Receive Date: 20200731
  Receipt Date: 20200731
  Transmission Date: 20201103
  Serious: Yes (Hospitalization)
  Sender: FDA-Public Use
  Company Number: US-EMD SERONO-9122077

PATIENT
  Age: 37 Year
  Sex: Female
  Weight: 82 kg

DRUGS (1)
  1. METFORMIN [Suspect]
     Active Substance: METFORMIN HYDROCHLORIDE
     Indication: POLYCYSTIC OVARIES

REACTIONS (3)
  - Breast feeding [Unknown]
  - Off label use [Recovered/Resolved]
  - Ketoacidosis [Recovering/Resolving]
